FAERS Safety Report 10102030 (Version 1)
Quarter: 2014Q2

REPORT INFORMATION
  Report Type: Report from Study
  Country: SA (occurrence: SA)
  Receive Date: 20140424
  Receipt Date: 20140424
  Transmission Date: 20141212
  Serious: Yes (Other)
  Sender: FDA-Public Use
  Company Number: SA-ASTELLAS-2014EU004165

PATIENT
  Sex: 0

DRUGS (1)
  1. TACROLIMUS [Suspect]
     Indication: IMMUNOSUPPRESSION
     Dosage: UNK, UNKNOWN FREQ.
     Route: 065

REACTIONS (9)
  - Nephropathy toxic [Unknown]
  - Diabetes mellitus [Unknown]
  - Hypertension [Unknown]
  - Infection [Unknown]
  - Hyperkalaemia [Unknown]
  - Hypokalaemia [Unknown]
  - Anaemia [Unknown]
  - Leukopenia [Unknown]
  - Diabetic ketoacidosis [Unknown]
